FAERS Safety Report 23529436 (Version 1)
Quarter: 2024Q1

REPORT INFORMATION
  Report Type: Other
  Country: JP (occurrence: JP)
  Receive Date: 20240216
  Receipt Date: 20240216
  Transmission Date: 20240410
  Serious: Yes (Other)
  Sender: FDA-Public Use
  Company Number: JP-CHUGAI-2024004198

PATIENT
  Age: 66 Year
  Sex: Male

DRUGS (2)
  1. ACTEMRA [Suspect]
     Active Substance: TOCILIZUMAB
     Indication: Rheumatoid arthritis
     Dosage: UNK
     Route: 065
  2. BETHANECHOL [Concomitant]
     Active Substance: BETHANECHOL

REACTIONS (3)
  - Bladder cancer [Unknown]
  - Hydronephrosis [Not Recovered/Not Resolved]
  - Duodenal neoplasm [Unknown]
